FAERS Safety Report 18995503 (Version 1)
Quarter: 2021Q1

REPORT INFORMATION
  Report Type: Spontaneous
  Country: US (occurrence: US)
  Receive Date: 20210306
  Receipt Date: 20210306
  Transmission Date: 20210420
  Serious: Yes (Other)
  Sender: FDA-Public Use
  Company Number: None

PATIENT
  Age: 66 Year
  Sex: Male
  Weight: 76.5 kg

DRUGS (2)
  1. MIRALAX [Suspect]
     Active Substance: POLYETHYLENE GLYCOL 3350
  2. VITAMINE D [Concomitant]
     Active Substance: CHOLECALCIFEROL

REACTIONS (3)
  - Anxiety [None]
  - Drug hypersensitivity [None]
  - Nightmare [None]

NARRATIVE: CASE EVENT DATE: 20200801
